FAERS Safety Report 4741118-3 (Version None)
Quarter: 2005Q3

REPORT INFORMATION
  Report Type: 
  Country: None (occurrence: None)
  Receive Date: 20050803
  Receipt Date: 20041123
  Transmission Date: 20060218
  Serious: Yes (Hospitalization)
  Sender: FDA-Public Use
  Company Number: 2004-11-1626

PATIENT
  Age: 46 Year
  Sex: Male
  Weight: 87.0906 kg

DRUGS (4)
  1. INTRON A [Suspect]
     Indication: HEPATITIS C
     Dosage: TIW
     Dates: start: 20001001, end: 20010928
  2. PERCOLONE [Concomitant]
  3. PERCOCET [Concomitant]
  4. HYDROCODONE [Concomitant]

REACTIONS (15)
  - ARTHRALGIA [None]
  - ARTHRITIS [None]
  - CARDIAC DISORDER [None]
  - CHILLS [None]
  - DEHYDRATION [None]
  - FATIGUE [None]
  - FIBROMA [None]
  - HEADACHE [None]
  - INFLUENZA LIKE ILLNESS [None]
  - MEMORY IMPAIRMENT [None]
  - NEUROPATHIC PAIN [None]
  - OEDEMA PERIPHERAL [None]
  - RENAL DISORDER [None]
  - VISUAL DISTURBANCE [None]
  - WEIGHT DECREASED [None]
